FAERS Safety Report 9949260 (Version 2)
Quarter: 2014Q2

REPORT INFORMATION
  Report Type: Spontaneous
  Country: US (occurrence: None)
  Receive Date: 20140122
  Receipt Date: 20140421
  Transmission Date: 20141212
  Serious: No
  Sender: FDA-Public Use
  Company Number: AEGR000226

PATIENT
  Age: 53 Year
  Sex: Male
  Weight: 78 kg

DRUGS (10)
  1. JUXTAPID [Suspect]
     Indication: TYPE IIA HYPERLIPIDAEMIA
     Route: 048
     Dates: start: 20131029, end: 2013
  2. JUXTAPID [Suspect]
     Indication: TYPE IIA HYPERLIPIDAEMIA
     Route: 048
     Dates: start: 20131029, end: 2013
  3. TAMSULOSIN [Concomitant]
  4. LISINOPRIL [Concomitant]
  5. AMLODIPINE (AMLODIPINE BESILATE) [Concomitant]
  6. PITAVASTATIN [Concomitant]
  7. METFORMIN HCL (METFORMIN HYDROCHLORIDE) [Concomitant]
  8. FISH OIL [Concomitant]
  9. PLAVIX (CLOPPIDOGREL BISULFATE) [Concomitant]
  10. NITROGLYCERIN (GLYCERYL TRINITRATE) [Concomitant]

REACTIONS (4)
  - Inappropriate schedule of drug administration [None]
  - Liver function test abnormal [None]
  - Aspartate aminotransferase increased [None]
  - Alanine aminotransferase increased [None]
